FAERS Safety Report 7780883-8 (Version None)
Quarter: 2011Q3

REPORT INFORMATION
  Report Type: 
  Country: None (occurrence: None)
  Receive Date: 20110927
  Receipt Date: 20110923
  Transmission Date: 20111222
  Serious: Yes (Hospitalization, Other)
  Sender: FDA-Public Use
  Company Number: US-PFIZER INC-2011227944

PATIENT
  Sex: Male

DRUGS (4)
  1. EPLERENONE [Suspect]
     Dosage: 25 MG, 1X/DAY
     Dates: start: 20110801
  2. AMLODIPINE BESYLATE [Suspect]
     Indication: HYPERTENSION
     Dosage: 5 MG, UNK
  3. EPLERENONE [Suspect]
     Indication: BLOOD ALDOSTERONE ABNORMAL
     Dosage: 50 MG, 1X/DAY
     Route: 048
     Dates: start: 20110301, end: 20110301
  4. AMLODIPINE BESYLATE [Suspect]
     Dosage: 5 MG, UNK
     Dates: start: 20110901

REACTIONS (8)
  - PYREXIA [None]
  - HEADACHE [None]
  - LETHARGY [None]
  - INFLUENZA [None]
  - FATIGUE [None]
  - NAUSEA [None]
  - LOSS OF CONSCIOUSNESS [None]
  - HEAD INJURY [None]
